FAERS Safety Report 13336768 (Version 1)
Quarter: 2017Q1

REPORT INFORMATION
  Report Type: Spontaneous
  Country: US (occurrence: US)
  Receive Date: 20170314
  Receipt Date: 20170314
  Transmission Date: 20170428
  Serious: No
  Sender: FDA-Public Use
  Company Number: US-JAZZ-JPI-P-026236

PATIENT
  Age: 36 Year
  Sex: Female
  Weight: 63.64 kg

DRUGS (7)
  1. XYREM [Suspect]
     Active Substance: SODIUM OXYBATE
     Indication: NARCOLEPSY
     Route: 048
     Dates: start: 201210, end: 201210
  2. LAMICTAL [Concomitant]
     Active Substance: LAMOTRIGINE
  3. XYREM [Suspect]
     Active Substance: SODIUM OXYBATE
     Indication: SOMNOLENCE
     Dosage: 3 G, BID
     Route: 048
     Dates: start: 201210
  4. AMERGE (NARATRIPTAN HYDROCHLORIDE) [Concomitant]
  5. DEXILANT [Concomitant]
     Active Substance: DEXLANSOPRAZOLE
  6. SINGULAIR (MONTELUKAST SODIUM) [Concomitant]
  7. ADDERALL [Concomitant]
     Active Substance: AMPHETAMINE ASPARTATE\AMPHETAMINE SULFATE\DEXTROAMPHETAMINE SACCHARATE\DEXTROAMPHETAMINE SULFATE

REACTIONS (2)
  - Initial insomnia [Not Recovered/Not Resolved]
  - Migraine [Recovering/Resolving]

NARRATIVE: CASE EVENT DATE: 20121031
